FAERS Safety Report 25522306 (Version 1)
Quarter: 2025Q3

REPORT INFORMATION
  Report Type: Report from Study
  Country: US (occurrence: US)
  Receive Date: 20250707
  Receipt Date: 20250707
  Transmission Date: 20251020
  Serious: Yes (Death, Other)
  Sender: JOHNSON AND JOHNSON
  Company Number: US-JNJFOC-20250610544

PATIENT

DRUGS (1)
  1. CARVYKTI [Suspect]
     Active Substance: CILTACABTAGENE AUTOLEUCEL
     Indication: Product used for unknown indication
     Route: 065
     Dates: start: 202502, end: 202502

REACTIONS (3)
  - Death [Fatal]
  - Drug ineffective [Unknown]
  - Plasmablastic lymphoma [Unknown]
